FAERS Safety Report 15814368 (Version 3)
Quarter: 2019Q2

REPORT INFORMATION
  Report Type: Spontaneous
  Country: US (occurrence: US)
  Receive Date: 20190111
  Receipt Date: 20190411
  Transmission Date: 20190711
  Serious: Yes (Other)
  Sender: FDA-Public Use
  Company Number: US-TEVA-2019-US-994984

PATIENT
  Sex: Female

DRUGS (3)
  1. METHOTREXATE SODIUM TEVA [Suspect]
     Active Substance: METHOTREXATE SODIUM
     Route: 065
     Dates: start: 20181229
  2. METHOTREXATE SODIUM TEVA [Suspect]
     Active Substance: METHOTREXATE SODIUM
     Route: 065
  3. METHOTREXATE SODIUM TEVA [Suspect]
     Active Substance: METHOTREXATE SODIUM
     Route: 065
     Dates: start: 20181222

REACTIONS (6)
  - Swelling [Recovered/Resolved]
  - Multiple use of single-use product [Unknown]
  - Rheumatoid arthritis [Unknown]
  - Erythema [Recovered/Resolved]
  - Arthralgia [Recovered/Resolved]
  - Product storage error [Unknown]
